FAERS Safety Report 18981557 (Version 1)
Quarter: 2021Q1

REPORT INFORMATION
  Report Type: Spontaneous
  Country: US (occurrence: US)
  Receive Date: 20210308
  Receipt Date: 20210308
  Transmission Date: 20210420
  Serious: Yes (Other)
  Sender: FDA-Public Use
  Company Number: None

PATIENT
  Age: 77 Year
  Sex: Male
  Weight: 61 kg

DRUGS (8)
  1. ROCEPHIN [Concomitant]
     Active Substance: CEFTRIAXONE SODIUM
     Dates: start: 20210208, end: 20210210
  2. DEXAMETHASONE. [Concomitant]
     Active Substance: DEXAMETHASONE
     Dates: start: 20210208
  3. BARICITINIB. [Suspect]
     Active Substance: BARICITINIB
     Indication: COVID-19
     Route: 048
     Dates: start: 20210208, end: 20210219
  4. REMDESIVIR. [Concomitant]
     Active Substance: REMDESIVIR
     Dates: start: 20210208, end: 20210212
  5. AZITHROMYCIN ANHYDROUS. [Concomitant]
     Active Substance: AZITHROMYCIN ANHYDROUS
     Dates: start: 20210208, end: 20210210
  6. CEFEPIME [Concomitant]
     Active Substance: CEFEPIME HYDROCHLORIDE
     Dates: start: 20210214, end: 20210218
  7. ROCEPHIN [Concomitant]
     Active Substance: CEFTRIAXONE SODIUM
     Dates: start: 20210218
  8. LOVENOX [Concomitant]
     Active Substance: ENOXAPARIN SODIUM
     Dates: start: 20210208, end: 20210224

REACTIONS (5)
  - Transaminases increased [None]
  - Serratia test positive [None]
  - Aspartate aminotransferase increased [None]
  - Lymphopenia [None]
  - Alanine aminotransferase increased [None]

NARRATIVE: CASE EVENT DATE: 20210219
